FAERS Safety Report 11389162 (Version 4)
Quarter: 2015Q4

REPORT INFORMATION
  Report Type: Spontaneous
  Country: US (occurrence: US)
  Receive Date: 20150817
  Receipt Date: 20151006
  Transmission Date: 20160304
  Serious: No
  Sender: FDA-Public Use
  Company Number: PHEH2015US015518

PATIENT
  Sex: Female

DRUGS (2)
  1. EXELON PATCH [Suspect]
     Active Substance: RIVASTIGMINE
     Indication: PRODUCT USED FOR UNKNOWN INDICATION
     Dosage: 9.5 MG/24HOURS (18 MG DAILY RIVASTIGMINE BASE/ PATCH 10 CM2)
     Route: 062
  2. CALCIUM + VIT D [Concomitant]
     Active Substance: CALCIUM\VITAMIN D
     Indication: PRODUCT USED FOR UNKNOWN INDICATION
     Dosage: CALCIUM 600 MG
     Route: 065

REACTIONS (1)
  - Drug administered at inappropriate site [Unknown]
